FAERS Safety Report 7768605-8 (Version None)
Quarter: 2011Q3

REPORT INFORMATION
  Report Type: 
  Country: None (occurrence: None)
  Receive Date: 20110922
  Receipt Date: 20110912
  Transmission Date: 20111222
  Serious: Yes (Other)
  Sender: FDA-Public Use
  Company Number: US-AMGEN-USASP2011047355

PATIENT
  Age: 93 Year
  Sex: Female
  Weight: 62.5 kg

DRUGS (3)
  1. EPOGEN [Suspect]
     Indication: PRODUCT USED FOR UNKNOWN INDICATION
     Dosage: UNK
  2. REVLIMID [Concomitant]
     Dosage: 10 MG, QD
  3. PREDNISONE [Concomitant]
     Dosage: 5 MG, QD

REACTIONS (4)
  - THERAPEUTIC RESPONSE DECREASED [None]
  - HYPOTHYROIDISM [None]
  - 5Q MINUS SYNDROME [None]
  - MYELODYSPLASTIC SYNDROME [None]
